FAERS Safety Report 6511100-4 (Version None)
Quarter: 2009Q4

REPORT INFORMATION
  Report Type: 
  Country: None (occurrence: None)
  Receive Date: 20091222
  Receipt Date: 20091211
  Transmission Date: 20100525
  Serious: Yes (Life-Threatening, Hospitalization, Other)
  Sender: FDA-Public Use
  Company Number: FR-ELI_LILLY_AND_COMPANY-FR200912002554

PATIENT
  Sex: Female

DRUGS (5)
  1. PROZAC [Suspect]
     Dosage: 20 MG, 2/D
     Route: 048
  2. ISOPTIN [Concomitant]
     Indication: TACHYCARDIA PAROXYSMAL
     Route: 048
  3. LEXOMIL [Concomitant]
     Route: 048
  4. ZOPICLONE [Concomitant]
     Route: 048
  5. UTROGESTAN [Concomitant]

REACTIONS (19)
  - ALANINE AMINOTRANSFERASE INCREASED [None]
  - ASCITES [None]
  - ASPARTATE AMINOTRANSFERASE INCREASED [None]
  - BACTERIAL INFECTION [None]
  - BRADYCARDIA [None]
  - CARDIOGENIC SHOCK [None]
  - CIRCULATORY COLLAPSE [None]
  - COMA [None]
  - HYPOCALCAEMIA [None]
  - HYPOKALAEMIA [None]
  - INTESTINAL ISCHAEMIA [None]
  - MULTI-ORGAN FAILURE [None]
  - OVERDOSE [None]
  - PLEURAL EFFUSION [None]
  - POISONING DELIBERATE [None]
  - RENAL FAILURE ACUTE [None]
  - SINOATRIAL BLOCK [None]
  - THROMBOCYTOPENIA [None]
  - VOMITING [None]
